FAERS Safety Report 5603883-2 (Version None)
Quarter: 2008Q1

REPORT INFORMATION
  Report Type: 
  Country: None (occurrence: None)
  Receive Date: 20080125
  Receipt Date: 20080125
  Transmission Date: 20080703
  Serious: Yes (Death)
  Sender: FDA-Public Use
  Company Number: None

PATIENT
  Age: 54 Year
  Sex: Male

DRUGS (1)
  1. NELFINAVIR [Suspect]
     Dosage: 2125 MG BID

REACTIONS (6)
  - ASCITES [None]
  - DEHYDRATION [None]
  - LIPOSARCOMA RECURRENT [None]
  - MALIGNANT NEOPLASM PROGRESSION [None]
  - PLEURAL EFFUSION [None]
  - RESPIRATORY FAILURE [None]
